FAERS Safety Report 15147606 (Version 4)
Quarter: 2018Q4

REPORT INFORMATION
  Report Type: Spontaneous
  Country: US (occurrence: US)
  Receive Date: 20180716
  Receipt Date: 20181024
  Transmission Date: 20190204
  Serious: No
  Sender: FDA-Public Use
  Company Number: US-PFIZER INC-2018282030

PATIENT
  Age: 59 Year
  Sex: Female

DRUGS (2)
  1. XELJANZ XR [Suspect]
     Active Substance: TOFACITINIB CITRATE
     Dosage: 11 MG, 1X/DAY
  2. METHOTREXATE SODIUM. [Suspect]
     Active Substance: METHOTREXATE SODIUM
     Dosage: 0.6 MG, WEEKLY
     Route: 058

REACTIONS (11)
  - Pain in extremity [Unknown]
  - Arthralgia [Unknown]
  - Peripheral swelling [Recovering/Resolving]
  - Pain [Unknown]
  - Herpes zoster [Unknown]
  - Blister [Recovered/Resolved]
  - Joint swelling [Recovering/Resolving]
  - Inflammatory marker increased [Recovering/Resolving]
  - Musculoskeletal stiffness [Unknown]
  - Rash [Recovered/Resolved]
  - Post herpetic neuralgia [Unknown]
